FAERS Safety Report 7014396-8 (Version None)
Quarter: 2010Q3

REPORT INFORMATION
  Report Type: 
  Country: None (occurrence: None)
  Receive Date: 20100927
  Receipt Date: 20100916
  Transmission Date: 20110219
  Serious: Yes (Hospitalization, Disabling, Other)
  Sender: FDA-Public Use
  Company Number: US-ELI_LILLY_AND_COMPANY-US201009004488

PATIENT
  Sex: Female
  Weight: 124.72 kg

DRUGS (2)
  1. BYETTA [Suspect]
     Indication: TYPE 2 DIABETES MELLITUS
     Dosage: 5 UG, 2/D
     Route: 058
  2. BYETTA [Suspect]
     Dosage: 10 UG, 2/D
     Route: 058

REACTIONS (14)
  - ARTHRITIS [None]
  - ASTHENIA [None]
  - BLOOD GLUCOSE INCREASED [None]
  - BLOOD PRESSURE ABNORMAL [None]
  - BONE DISORDER [None]
  - DIARRHOEA [None]
  - GENERAL PHYSICAL HEALTH DETERIORATION [None]
  - HEART RATE DECREASED [None]
  - MOBILITY DECREASED [None]
  - POLLAKIURIA [None]
  - SKIN IRRITATION [None]
  - URINARY RETENTION [None]
  - URINARY TRACT INFECTION [None]
  - WEIGHT LOSS POOR [None]
